FAERS Safety Report 5074388-5 (Version None)
Quarter: 2006Q3

REPORT INFORMATION
  Report Type: 
  Country: None (occurrence: None)
  Receive Date: 20060714
  Receipt Date: 20060401
  Transmission Date: 20061208
  Serious: No
  Sender: FDA-Public Use
  Company Number: 2006SP000737

PATIENT
  Age: 34 Year
  Sex: Male
  Weight: 68.9467 kg

DRUGS (3)
  1. LUNESTA [Suspect]
     Indication: SLEEP DISORDER
     Dosage: 3 MG; ORAL
     Route: 048
     Dates: start: 20060101
  2. ACCUTANE [Concomitant]
  3. MIDRIN [Concomitant]

REACTIONS (1)
  - GYNAECOMASTIA [None]
